FAERS Safety Report 14815107 (Version 1)
Quarter: 2018Q2

REPORT INFORMATION
  Report Type: Report from Study
  Country: KR (occurrence: KR)
  Receive Date: 20180426
  Receipt Date: 20180426
  Transmission Date: 20180711
  Serious: Yes (Hospitalization)
  Sender: FDA-Public Use
  Company Number: KR-ACTELION-A-CH2018-171091

PATIENT
  Age: 37 Year
  Sex: Male

DRUGS (13)
  1. VIREAD [Concomitant]
     Active Substance: TENOFOVIR DISOPROXIL FUMARATE
     Dosage: 1 DF, QD
     Route: 048
     Dates: start: 20160308
  2. LASIX [Concomitant]
     Active Substance: FUROSEMIDE
     Dosage: 0.5 DF, QD
     Route: 048
     Dates: start: 20160202
  3. PARIET [Concomitant]
     Active Substance: RABEPRAZOLE SODIUM
     Dosage: 10 MG, QD
     Route: 048
     Dates: start: 20160308
  4. HERBEN [Concomitant]
     Active Substance: DILTIAZEM HYDROCHLORIDE
     Dosage: 180 MG, QD
     Route: 048
     Dates: start: 20150105, end: 20171226
  5. LAMINA-G [Concomitant]
     Dosage: 40 ML, QD
     Route: 048
     Dates: start: 20161117, end: 20171120
  6. DIGOSIN [Concomitant]
     Active Substance: DIGOXIN
     Dosage: 1 DF, QD
     Route: 048
     Dates: start: 20130612
  7. ALDACTONE [Concomitant]
     Active Substance: SPIRONOLACTONE
     Dosage: 50 MG, QD
     Dates: start: 20171227
  8. ALDACTONE [Concomitant]
     Active Substance: SPIRONOLACTONE
     Dosage: 25 MG, QD
     Route: 048
     Dates: start: 20130612, end: 20171226
  9. PLETAAL [Concomitant]
     Active Substance: CILOSTAZOL
     Dosage: 200 MG, QD
     Route: 048
     Dates: start: 20150504
  10. INDENOL [Concomitant]
     Active Substance: PROPRANOLOL HYDROCHLORIDE
     Dosage: 20 MG, QD
     Route: 048
     Dates: start: 20160308
  11. URSA [Concomitant]
     Active Substance: URSODIOL
     Dosage: 200 MG, QD
     Route: 048
     Dates: start: 20160308
  12. OPSUMIT [Suspect]
     Active Substance: MACITENTAN
     Indication: PULMONARY ARTERIAL HYPERTENSION
     Dosage: 10 MG, OD
     Route: 048
     Dates: start: 20171101
  13. NORMIX [Concomitant]
     Active Substance: RIFAXIMIN
     Dosage: 3 DF, QD
     Route: 048
     Dates: start: 20171219

REACTIONS (2)
  - Hyperammonaemia [Recovered/Resolved]
  - Asterixis [Recovered/Resolved]

NARRATIVE: CASE EVENT DATE: 20171222
